FAERS Safety Report 15926914 (Version 1)
Quarter: 2019Q1

REPORT INFORMATION
  Report Type: Spontaneous
  Country: US (occurrence: US)
  Receive Date: 20190206
  Receipt Date: 20190206
  Transmission Date: 20190417
  Serious: Yes (Life-Threatening)
  Sender: FDA-Public Use
  Company Number: US-PFIZER INC-2019049145

PATIENT
  Age: 70 Year
  Sex: Female
  Weight: 81.65 kg

DRUGS (1)
  1. ALPRAZOLAM. [Suspect]
     Active Substance: ALPRAZOLAM
     Indication: PANIC ATTACK
     Dosage: 0.5 MG, 2X/DAY
     Route: 048

REACTIONS (4)
  - Urticaria [Unknown]
  - Reaction to excipient [Unknown]
  - Anaphylactic shock [Unknown]
  - Atrial fibrillation [Unknown]
